FAERS Safety Report 10261541 (Version 2)
Quarter: 2014Q3

REPORT INFORMATION
  Report Type: Spontaneous
  Country: JP (occurrence: None)
  Receive Date: 20140623
  Receipt Date: 20140721
  Transmission Date: 20150326
  Serious: Yes (Other)
  Sender: FDA-Public Use
  Company Number: JP-016069

PATIENT
  Age: 65 Year
  Sex: Male

DRUGS (4)
  1. ODYNE [Suspect]
     Active Substance: FLUTAMIDE
     Indication: ANTIANDROGEN THERAPY
     Dates: start: 20140508, end: 20140610
  2. NEO-MINOPHAGEN C [Concomitant]
     Active Substance: AMMONIUM GLYCYRRHIZATE
  3. URDENACIN [Concomitant]
  4. DEGARELIX [Suspect]
     Active Substance: DEGARELIX
     Indication: PROSTATE CANCER
     Route: 058
     Dates: start: 20140508, end: 20140508

REACTIONS (4)
  - Rash generalised [None]
  - Pruritus [None]
  - Skin discolouration [None]
  - Pyrexia [None]

NARRATIVE: CASE EVENT DATE: 20140609
